FAERS Safety Report 10544022 (Version 1)
Quarter: 2014Q4

REPORT INFORMATION
  Report Type: Spontaneous
  Country: US (occurrence: None)
  Receive Date: 20141010
  Receipt Date: 20141010
  Transmission Date: 20150529
  Serious: No
  Sender: FDA-Public Use
  Company Number: 163-POMAL-14074497

PATIENT
  Age: 64 Year
  Sex: Female
  Weight: 68.04 kg

DRUGS (10)
  1. PAROXETINE HCL (PAROXETINE HYDROCHLORIDE) [Concomitant]
  2. SULFAMETHOXAZOLE-TRIME (BACTRIM) [Concomitant]
  3. MULTIVITAMINS (MULTIVITAMINS) [Concomitant]
     Active Substance: VITAMINS
  4. LOSARTAN POTASSIUM (LOSARTAN POTASSIUM) [Concomitant]
     Active Substance: LOSARTAN POTASSIUM
  5. FISH OIL (FISH OIL) [Concomitant]
     Active Substance: FISH OIL
  6. POMALYST [Suspect]
     Active Substance: POMALIDOMIDE
     Indication: PLASMA CELL MYELOMA
     Dosage: 21 IN 21 D
     Route: 048
     Dates: start: 20130410
  7. DEXAMETHASONE (DEXAMETHASONE) [Concomitant]
     Active Substance: DEXAMETHASONE
  8. CALCIUM (CALCIUM) [Concomitant]
     Active Substance: CALCIUM
  9. ECOTRIN [Concomitant]
     Active Substance: ASPIRIN
  10. AMLODIPINE BESYLATE (AMLODIPINE BESYLATE) [Concomitant]

REACTIONS (1)
  - Stomatitis [None]

NARRATIVE: CASE EVENT DATE: 2014
